FAERS Safety Report 8297820-2 (Version None)
Quarter: 2012Q2

REPORT INFORMATION
  Report Type: 
  Country: None (occurrence: None)
  Receive Date: 20120419
  Receipt Date: 20120413
  Transmission Date: 20120825
  Serious: Yes (Hospitalization, Disabling, Other)
  Sender: FDA-Public Use
  Company Number: US-BAYER-2012-037367

PATIENT
  Age: 30 Year
  Sex: Female

DRUGS (1)
  1. AVELOX [Suspect]
     Indication: RESPIRATORY TRACT INFECTION
     Dosage: 400 MG, QD
     Dates: start: 20100212, end: 20100219

REACTIONS (8)
  - OCULAR HYPERAEMIA [None]
  - MYDRIASIS [None]
  - PUPILLARY REFLEX IMPAIRED [None]
  - OPTIC ATROPHY [None]
  - UVEITIS [None]
  - BLINDNESS [None]
  - IRIS TRANSILLUMINATION DEFECT [None]
  - LACRIMATION INCREASED [None]
